FAERS Safety Report 21419727 (Version 1)
Quarter: 2022Q4

REPORT INFORMATION
  Report Type: Report from Study
  Country: US (occurrence: US)
  Receive Date: 20221006
  Receipt Date: 20221006
  Transmission Date: 20230113
  Serious: Yes (Death, Other)
  Sender: FDA-Public Use
  Company Number: US-ACADIA PHARMACEUTICALS INC.-ACA-2022-PIM-003283

PATIENT
  Sex: Female

DRUGS (11)
  1. NUPLAZID [Suspect]
     Active Substance: PIMAVANSERIN TARTRATE
     Indication: Parkinson^s disease psychosis
     Dosage: 34 MILLIGRAM, QD
     Route: 048
     Dates: start: 20200115, end: 20220819
  2. SCOPALAMIN [Concomitant]
  3. MORPHINE [Concomitant]
     Active Substance: MORPHINE
  4. LORAZEPAM [Concomitant]
     Active Substance: LORAZEPAM
  5. IRBESARTAN [Concomitant]
     Active Substance: IRBESARTAN
  6. NITROFURANTOIN [Concomitant]
     Active Substance: NITROFURANTOIN
  7. DOXEPIN [Concomitant]
     Active Substance: DOXEPIN
  8. METOPROLOL TARTRATE [Concomitant]
     Active Substance: METOPROLOL TARTRATE
  9. CARBIDOPA\LEVODOPA [Concomitant]
     Active Substance: CARBIDOPA\LEVODOPA
  10. CITALOPRAM [Concomitant]
     Active Substance: CITALOPRAM HYDROBROMIDE
  11. SIMVASTATIN [Concomitant]
     Active Substance: SIMVASTATIN

REACTIONS (1)
  - Disease progression [Recovered/Resolved]
